FAERS Safety Report 18611120 (Version 1)
Quarter: 2020Q4

REPORT INFORMATION
  Report Type: Spontaneous
  Country: US (occurrence: US)
  Receive Date: 20201214
  Receipt Date: 20201214
  Transmission Date: 20210114
  Serious: No
  Sender: FDA-Public Use
  Company Number: US-PFIZER INC-2020490773

PATIENT
  Age: 63 Year
  Sex: Female

DRUGS (1)
  1. ADVIL LIQUI-GELS [Suspect]
     Active Substance: IBUPROFEN
     Dosage: UNK
     Route: 048

REACTIONS (6)
  - Product taste abnormal [Unknown]
  - Exposure via skin contact [Unknown]
  - Oral discomfort [Unknown]
  - Poor quality product administered [Unknown]
  - Nervousness [Unknown]
  - Product physical issue [Unknown]
